FAERS Safety Report 7817538 (Version 5)
Quarter: 2012Q4

REPORT INFORMATION
  Report Type: 
  Country: US (occurrence: US)
  Receive Date: 20110217
  Receipt Date: 20121226
  Transmission Date: 20130627
  Serious: Yes (Hospitalization, Other)
  Sender: FDA-Public Use
  Company Number: US-ASTRAZENECA-2011SE07340

PATIENT
  Age: 57 Year
  Sex: Female

DRUGS (26)
  1. SEROQUEL [Suspect]
     Indication: DEPRESSION
     Route: 048
     Dates: start: 20080101, end: 20110105
  2. SEROQUEL [Suspect]
     Indication: BIPOLAR DISORDER
     Route: 048
     Dates: start: 20080101, end: 20110105
  3. SEROQUEL [Suspect]
     Indication: ANXIETY
     Route: 048
     Dates: start: 20080101, end: 20110105
  4. SEROQUEL [Suspect]
     Indication: PANIC ATTACK
     Route: 048
     Dates: start: 20080101, end: 20110105
  5. SEROQUEL [Suspect]
     Indication: MIGRAINE
     Route: 048
     Dates: start: 20080101, end: 20110105
  6. SEROQUEL [Suspect]
     Indication: DEPRESSION
     Route: 048
     Dates: start: 2006
  7. SEROQUEL [Suspect]
     Indication: BIPOLAR DISORDER
     Route: 048
     Dates: start: 2006
  8. SEROQUEL [Suspect]
     Indication: ANXIETY
     Route: 048
     Dates: start: 2006
  9. SEROQUEL [Suspect]
     Indication: PANIC ATTACK
     Route: 048
     Dates: start: 2006
  10. SEROQUEL [Suspect]
     Indication: MIGRAINE
     Route: 048
     Dates: start: 2006
  11. SEROQUEL [Suspect]
     Indication: DEPRESSION
     Route: 048
  12. SEROQUEL [Suspect]
     Indication: BIPOLAR DISORDER
     Route: 048
  13. SEROQUEL [Suspect]
     Indication: ANXIETY
     Route: 048
  14. SEROQUEL [Suspect]
     Indication: PANIC ATTACK
     Route: 048
  15. SEROQUEL [Suspect]
     Indication: MIGRAINE
     Route: 048
  16. SYNTHROID [Concomitant]
  17. AMBIEN CR [Concomitant]
  18. PHENERGAN [Concomitant]
     Indication: NAUSEA
     Dosage: AS NEEDED
  19. WELLBUTRIN [Concomitant]
  20. ALLEVE [Concomitant]
     Dosage: AS NEEDED
  21. XANAX [Concomitant]
  22. AMBIEN [Concomitant]
     Indication: SLEEP DISORDER
  23. BUPROPION [Concomitant]
  24. RESTORIL [Concomitant]
  25. CELEXA [Concomitant]
  26. CELEXA [Concomitant]

REACTIONS (13)
  - Small intestinal obstruction [Unknown]
  - Chronic lymphocytic leukaemia [Unknown]
  - Suicidal behaviour [Unknown]
  - Tympanic membrane perforation [Unknown]
  - Migraine [Recovering/Resolving]
  - Colitis ulcerative [Unknown]
  - Osteoporosis [Unknown]
  - Insomnia [Recovered/Resolved]
  - Depression [Recovered/Resolved]
  - Hearing impaired [Unknown]
  - Adverse event [Unknown]
  - Weight decreased [Unknown]
  - Drug dose omission [Unknown]
